FAERS Safety Report 5973137-3 (Version None)
Quarter: 2008Q4

REPORT INFORMATION
  Report Type: 
  Country: None (occurrence: None)
  Receive Date: 20081126
  Receipt Date: 20081126
  Transmission Date: 20090506
  Serious: Yes (Other)
  Sender: FDA-Public Use
  Company Number: None

PATIENT
  Age: 74 Year
  Sex: Male
  Weight: 102.0593 kg

DRUGS (1)
  1. FLOMAX [Suspect]

REACTIONS (5)
  - COLD SWEAT [None]
  - DRUG INEFFECTIVE [None]
  - HEART RATE DECREASED [None]
  - MUSCLE DISORDER [None]
  - SYNCOPE [None]
